FAERS Safety Report 4784172-5 (Version None)
Quarter: 2005Q3

REPORT INFORMATION
  Report Type: 
  Country: None (occurrence: None)
  Receive Date: 20050928
  Receipt Date: 20050920
  Transmission Date: 20060218
  Serious: Yes (Death, Other)
  Sender: FDA-Public Use
  Company Number: 2005117519

PATIENT
  Age: 78 Year
  Sex: Female

DRUGS (8)
  1. MACUGEN [Suspect]
     Indication: ILL-DEFINED DISORDER
     Dosage: ( 1 IN 6 WK), INTRAVITREOUS
     Dates: start: 20050303, end: 20050715
  2. SOTALOL HCL [Concomitant]
  3. METHIMAZOLE [Concomitant]
  4. MAGNESIUM (MAGNESIUM) [Concomitant]
  5. POTASSIUM CHLORIDE [Concomitant]
  6. CALCIUM (CALCIUM) [Concomitant]
  7. ACETYLSALICYLIC ACID SRT [Concomitant]
  8. OCUVITA (ASCORBIC ACID, RETINOL, TOCOPEROL) [Concomitant]

REACTIONS (2)
  - CEREBROVASCULAR ACCIDENT [None]
  - HYPERTENSION [None]
